FAERS Safety Report 21111307 (Version 2)
Quarter: 2022Q3

REPORT INFORMATION
  Report Type: Spontaneous
  Country: AU (occurrence: AU)
  Receive Date: 20220721
  Receipt Date: 20220825
  Transmission Date: 20221027
  Serious: Yes (Hospitalization, Other)
  Sender: FDA-Public Use
  Company Number: AU-GSKCCFAPAC-Case-01535734_AE-60253

PATIENT

DRUGS (1)
  1. VENTOLIN [Suspect]
     Active Substance: ALBUTEROL SULFATE
     Indication: Product used for unknown indication
     Dosage: UNK,100MCG 1X200D

REACTIONS (5)
  - Asthma [Unknown]
  - Emphysema [Unknown]
  - Lung disorder [Unknown]
  - Product dose omission issue [Unknown]
  - Product complaint [Unknown]
